FAERS Safety Report 4780892-7 (Version None)
Quarter: 2005Q3

REPORT INFORMATION
  Report Type: 
  Country: None (occurrence: None)
  Receive Date: 20050928
  Receipt Date: 20050919
  Transmission Date: 20060218
  Serious: Yes (Other)
  Sender: FDA-Public Use
  Company Number: PHBS2005BE14006

PATIENT
  Age: 3 Year
  Sex: Female

DRUGS (2)
  1. ELIDEL [Suspect]
     Indication: DERMATITIS ATOPIC
     Dosage: UNK, BID
     Route: 061
     Dates: start: 20050401, end: 20050401
  2. ELIDEL [Suspect]
     Dosage: UNK, QD
     Route: 061
     Dates: start: 20050905, end: 20050905

REACTIONS (7)
  - CYTOMEGALOVIRUS INFECTION [None]
  - GENERALISED ERYTHEMA [None]
  - ILL-DEFINED DISORDER [None]
  - LYMPHADENOPATHY [None]
  - PYREXIA [None]
  - SEROLOGY POSITIVE [None]
  - SKIN REACTION [None]
